FAERS Safety Report 6746946-0 (Version None)
Quarter: 2010Q2

REPORT INFORMATION
  Report Type: 
  Country: None (occurrence: None)
  Receive Date: 20100528
  Receipt Date: 20090825
  Transmission Date: 20101027
  Serious: No
  Sender: FDA-Public Use
  Company Number: US-ASTRAZENECA-2009SE14403

PATIENT
  Sex: Female

DRUGS (12)
  1. PRILOSEC OTC [Suspect]
     Indication: GASTROOESOPHAGEAL REFLUX DISEASE
     Dosage: 1 TABLET, 1 /DAY
     Route: 048
     Dates: end: 20090824
  2. INDERAL [Concomitant]
     Indication: ARRHYTHMIA
     Dosage: UNKNOWN
  3. SPIRONOLACTONE [Concomitant]
     Dosage: UNKNOWN
  4. GABAPENTIN [Concomitant]
     Dosage: UNKNOWN
  5. POTASSIUM [Concomitant]
     Dosage: UNKNOWN
  6. CELEBREX [Concomitant]
     Dosage: UNKNOWN
  7. METFORMIN HYDROCHLORIDE [Concomitant]
     Dosage: UNKNOWN
  8. PRANDIN [Concomitant]
     Dosage: UNKNOWN
  9. CITRACAL [Concomitant]
     Dosage: UNKNOWN
  10. MAGNEX [Concomitant]
     Dosage: UNKNOWN
  11. OXCARBAZEPINE [Concomitant]
     Dosage: UNKNOWN
  12. VYTORIN [Concomitant]
     Dosage: UNKNOWN

REACTIONS (1)
  - EXTRASYSTOLES [None]
